FAERS Safety Report 11238877 (Version 2)
Quarter: 2015Q3

REPORT INFORMATION
  Report Type: Spontaneous
  Country: JP (occurrence: JP)
  Receive Date: 20150706
  Receipt Date: 20150720
  Transmission Date: 20151125
  Serious: Yes (Other)
  Sender: FDA-Public Use
  Company Number: JP-009507513-1507JPN001802

PATIENT

DRUGS (4)
  1. DEXAMETHASONE SODIUM PHOSPHATE. [Suspect]
     Active Substance: DEXAMETHASONE SODIUM PHOSPHATE
     Indication: LYMPHOMA
     Dosage: DAILY DOSAGE UNKNOWN
     Route: 051
  2. GEMCITABINE HYDROCHLORIDE. [Suspect]
     Active Substance: GEMCITABINE HYDROCHLORIDE
     Indication: LYMPHOMA
     Dosage: DAILY DOSAGE UNKNOWN
     Route: 051
  3. CISPLATIN. [Suspect]
     Active Substance: CISPLATIN
     Indication: LYMPHOMA
     Dosage: DAILY DOSAGE UNKNOWN
     Route: 051
  4. THERAPY UNSPECIFIED [Suspect]
     Active Substance: UNSPECIFIED INGREDIENT
     Indication: LYMPHOMA
     Dosage: UNK

REACTIONS (2)
  - Renal disorder [Unknown]
  - Bone marrow failure [Recovered/Resolved]
